FAERS Safety Report 24988576 (Version 1)
Quarter: 2025Q1

REPORT INFORMATION
  Report Type: Spontaneous
  Country: CA (occurrence: CA)
  Receive Date: 20250220
  Receipt Date: 20250220
  Transmission Date: 20250408
  Serious: Yes (Hospitalization, Other)
  Sender: AMGEN
  Company Number: CA-AMGEN-CANSP2025029910

PATIENT
  Age: 68 Year
  Sex: Female

DRUGS (2)
  1. ADALIMUMAB [Suspect]
     Active Substance: ADALIMUMAB
     Indication: Rheumatoid arthritis
     Route: 065
  2. METHOTREXATE [Suspect]
     Active Substance: METHOTREXATE
     Indication: Rheumatoid arthritis
     Route: 065

REACTIONS (11)
  - Chills [Unknown]
  - Pyrexia [Unknown]
  - Headache [Unknown]
  - Nausea [Unknown]
  - Vomiting [Unknown]
  - Night sweats [Unknown]
  - Weight decreased [Unknown]
  - Cough [Unknown]
  - Herpes simplex [Unknown]
  - Hypersensitivity pneumonitis [Unknown]
  - Histoplasmosis [Unknown]
